FAERS Safety Report 7348571-X (Version None)
Quarter: 2011Q1

REPORT INFORMATION
  Report Type: 
  Country: None (occurrence: None)
  Receive Date: 20110314
  Receipt Date: 20110304
  Transmission Date: 20110831
  Serious: Yes (Hospitalization)
  Sender: FDA-Public Use
  Company Number: US-BIOGENIDEC-2011BI003789

PATIENT
  Age: 56 Year
  Sex: Female
  Weight: 56 kg

DRUGS (3)
  1. AVONEX [Suspect]
     Route: 030
     Dates: start: 20070808, end: 20071001
  2. AVONEX [Suspect]
     Indication: MULTIPLE SCLEROSIS
     Route: 030
     Dates: start: 20090109
  3. AVONEX [Suspect]
     Route: 030
     Dates: start: 19990701

REACTIONS (15)
  - GAIT DISTURBANCE [None]
  - MUSCULOSKELETAL PAIN [None]
  - DIARRHOEA [None]
  - HEPATIC ENZYME INCREASED [None]
  - CHEST DISCOMFORT [None]
  - MULTIPLE SCLEROSIS [None]
  - CONFUSIONAL STATE [None]
  - PAIN IN EXTREMITY [None]
  - HYPOAESTHESIA [None]
  - MULTIPLE SCLEROSIS RELAPSE [None]
  - DYSPNOEA [None]
  - MYOCARDIAL INFARCTION [None]
  - BLOOD POTASSIUM DECREASED [None]
  - HYPERTENSION [None]
  - VENTRICULAR EXTRASYSTOLES [None]
